FAERS Safety Report 5028291-7 (Version None)
Quarter: 2006Q2

REPORT INFORMATION
  Report Type: 
  Country: None (occurrence: None)
  Receive Date: 20060613
  Receipt Date: 20060530
  Transmission Date: 20061013
  Serious: Yes (Hospitalization, Disabling)
  Sender: FDA-Public Use
  Company Number: 224662

PATIENT
  Age: 54 Year
  Sex: Male

DRUGS (4)
  1. RAPTIVA [Suspect]
     Indication: PSORIASIS
     Dosage: 0.9 ML, 1\WEEK, SUBCUTANEOUS
     Route: 058
     Dates: start: 20060101, end: 20060328
  2. ANGIOTENSIN II RECEPTOR ANTAGONISTS (ANGIOTENSIN II RECEPTOR ANTAGONIS [Concomitant]
  3. CALCIUM CHANNEL BLOCKERS (CALCIUM CHANNEL BLOCKER NOS) [Concomitant]
  4. ASPIRIN [Concomitant]

REACTIONS (3)
  - DERMATITIS EXFOLIATIVE [None]
  - GENERALISED ERYTHEMA [None]
  - INFLAMMATION [None]
